FAERS Safety Report 6507335-7 (Version None)
Quarter: 2009Q4

REPORT INFORMATION
  Report Type: 
  Country: None (occurrence: None)
  Receive Date: 20091221
  Receipt Date: 20091218
  Transmission Date: 20100525
  Serious: Yes (Hospitalization)
  Sender: FDA-Public Use
  Company Number: PHHO2009ZA04271

PATIENT
  Sex: Female
  Weight: 65 kg

DRUGS (7)
  1. VALSARTAN [Suspect]
     Dosage: LEVEL 1
     Route: 048
     Dates: start: 20030620
  2. NATEGLINIDE [Suspect]
     Dosage: LEVEL 2
     Route: 048
  3. PLACEBO PLACEBO [Suspect]
     Indication: CARDIOVASCULAR DISORDER
     Dosage: LEVEL 1
     Route: 048
     Dates: start: 20030620
  4. PLACEBO PLACEBO [Suspect]
     Dosage: LEVEL 2
     Route: 048
  5. PLACEBO PLACEBO [Suspect]
     Dosage: LEVEL 1
     Route: 048
  6. DISPRIN [Concomitant]
     Indication: ISCHAEMIC HEART DISEASE PROPHYLAXIS
     Dosage: UNK
  7. MELOXICAM [Concomitant]
     Indication: PERIARTHRITIS

REACTIONS (4)
  - ASTHENIA [None]
  - DIZZINESS [None]
  - NAUSEA [None]
  - ORTHOSTATIC HYPOTENSION [None]
